FAERS Safety Report 8728354 (Version 5)
Quarter: 2012Q4

REPORT INFORMATION
  Report Type: 
  Country: FR (occurrence: FR)
  Receive Date: 20120817
  Receipt Date: 20121016
  Transmission Date: 20130627
  Serious: Yes (Hospitalization)
  Sender: FDA-Public Use
  Company Number: FR-UCBSA-063471

PATIENT
  Age: 80 Year
  Sex: Male

DRUGS (10)
  1. KEPPRA [Suspect]
     Route: 048
     Dates: start: 201206, end: 2012
  2. KEPPRA [Suspect]
     Dosage: (1.5 TABLETS TWICE DAILY)
     Route: 048
     Dates: start: 2012
  3. NEURONTIN [Concomitant]
     Dosage: FOR SEVERAL YEARS
  4. CELIPROLOL [Concomitant]
     Dates: start: 2012
  5. RENITEC [Concomitant]
     Dosage: DAILY DOSE: 20 MG
     Dates: start: 2012
  6. LERCANIDIPINE [Concomitant]
     Dosage: DAILY DOSE: 10 MG
     Dates: start: 2012
  7. MECIR [Concomitant]
     Dates: start: 2012
  8. UVEDOSE [Concomitant]
     Dosage: 100000 IU/2ML, ONE AMPOULE ON 13 AND 27-AUG-2012
     Route: 048
     Dates: start: 2012
  9. URBANYL [Concomitant]
     Dosage: 5 MG ONE TABLET TWICE DAILY FOR ONE WEEK AND THEN ONE TABLET DAILY FOR ONE WEEK THEN DISCONTINUATION
     Dates: start: 2012
  10. PLAVIX [Concomitant]
     Dosage: DAILY DOSE: 75 MG
     Dates: start: 2012

REACTIONS (23)
  - Aggression [Recovered/Resolved]
  - Memory impairment [Unknown]
  - Depression [Unknown]
  - Mood altered [Unknown]
  - Hostility [Recovered/Resolved]
  - Nervousness [Unknown]
  - Irritability [Unknown]
  - Anger [Unknown]
  - Somnolence [Unknown]
  - Dizziness [Unknown]
  - Balance disorder [Unknown]
  - Attention deficit/hyperactivity disorder [Unknown]
  - Weight decreased [Unknown]
  - Vomiting [Unknown]
  - Liver function test abnormal [Unknown]
  - Asthenia [Not Recovered/Not Resolved]
  - Fatigue [Not Recovered/Not Resolved]
  - Vertigo [Not Recovered/Not Resolved]
  - Malaise [Unknown]
  - Drug ineffective [Unknown]
  - Decreased appetite [Not Recovered/Not Resolved]
  - Agitation [Recovered/Resolved]
  - Fall [Unknown]
